FAERS Safety Report 24583326 (Version 1)
Quarter: 2024Q4

REPORT INFORMATION
  Report Type: Spontaneous
  Country: US (occurrence: US)
  Receive Date: 20241106
  Receipt Date: 20241106
  Transmission Date: 20250114
  Serious: Yes (Other)
  Sender: STRIDES
  Company Number: US-STRIDES ARCOLAB LIMITED-2023SP003883

PATIENT
  Age: 80 Year
  Sex: Male

DRUGS (19)
  1. QUININE [Suspect]
     Active Substance: QUININE
     Indication: Babesiosis
     Dosage: 648 MILLIGRAM, TID  (THRICE DAILY)
     Route: 065
  2. QUININE [Suspect]
     Active Substance: QUININE
     Dosage: UNK, RESUMED (HOWEVER QUININE THERAPY INTERRUPTED TWICE)
     Route: 065
     Dates: start: 2021
  3. AZITHROMYCIN [Suspect]
     Active Substance: AZITHROMYCIN
     Indication: Babesiosis
     Dosage: 500 MILLIGRAM, PER DAY
     Route: 065
     Dates: start: 2021
  4. AZITHROMYCIN [Suspect]
     Active Substance: AZITHROMYCIN
     Dosage: UNK, RESUMED
     Route: 065
  5. AZITHROMYCIN [Suspect]
     Active Substance: AZITHROMYCIN
     Dosage: 1000 MILLIGRAM, PER DAY
     Route: 065
  6. CLINDAMYCIN [Suspect]
     Active Substance: CLINDAMYCIN
     Indication: Babesiosis
     Dosage: 600 MILLIGRAM, TID (THRICE DAILY)
     Route: 065
     Dates: start: 2021
  7. CLINDAMYCIN [Suspect]
     Active Substance: CLINDAMYCIN
     Dosage: UNK, RESUMED
     Route: 065
  8. CLINDAMYCIN [Suspect]
     Active Substance: CLINDAMYCIN
     Dosage: 300 MILLIGRAM, TID (THRICE DAILY) (LOW DOSE)
     Route: 065
  9. RITUXIMAB [Suspect]
     Active Substance: RITUXIMAB
     Indication: Monoclonal B-cell lymphocytosis
     Dosage: UNK
     Route: 065
  10. BENDAMUSTINE [Suspect]
     Active Substance: BENDAMUSTINE
     Indication: Monoclonal B-cell lymphocytosis
     Dosage: UNK
     Route: 065
  11. ATOVAQUONE [Suspect]
     Active Substance: ATOVAQUONE
     Indication: Babesiosis
     Dosage: 750 MILLIGRAM, BID (TWICE DAILY)
     Route: 065
  12. ATOVAQUONE [Suspect]
     Active Substance: ATOVAQUONE
     Dosage: UNK, RESUMED
     Route: 065
     Dates: start: 2021
  13. ATOVAQUONE [Suspect]
     Active Substance: ATOVAQUONE
     Dosage: UNK
     Route: 065
  14. ATOVAQUONE [Suspect]
     Active Substance: ATOVAQUONE
     Dosage: 1250 MILLIGRAM (DOSE INCREASED)
     Route: 065
  15. HUMAN IMMUNOGLOBULIN G [Suspect]
     Active Substance: HUMAN IMMUNOGLOBULIN G
     Indication: Cold type haemolytic anaemia
     Dosage: UNK
     Route: 042
  16. ATOVAQUONE\PROGUANIL [Suspect]
     Active Substance: ATOVAQUONE\PROGUANIL
     Indication: Babesiosis
     Dosage: UNK, QD (ATOVAQUONE/PROGUANIL 1000/400 MG DAILY)
     Route: 065
  17. ATOVAQUONE\PROGUANIL [Suspect]
     Active Substance: ATOVAQUONE\PROGUANIL
     Dosage: UNK, QD (ATOVAQUONE/PROGUANIL 500/200 MG DAILY)
     Route: 065
  18. TAFENOQUINE [Concomitant]
     Active Substance: TAFENOQUINE
     Indication: Babesiosis
     Dosage: 300 MILLIGRAM PER WEEK
     Route: 065
  19. TAFENOQUINE [Concomitant]
     Active Substance: TAFENOQUINE
     Dosage: 150 MILLIGRAM PER WEEK
     Route: 065

REACTIONS (10)
  - Deafness [Recovered/Resolved]
  - Drug resistance [Unknown]
  - Decreased appetite [Recovered/Resolved]
  - Dyspnoea exertional [Recovered/Resolved]
  - Fatigue [Recovered/Resolved]
  - Abdominal discomfort [Recovered/Resolved]
  - Nausea [Recovered/Resolved]
  - Vomiting [Recovered/Resolved]
  - Diarrhoea [Recovered/Resolved]
  - Off label use [Unknown]
